FAERS Safety Report 23981760 (Version 1)
Quarter: 2024Q2

REPORT INFORMATION
  Report Type: Spontaneous
  Country: US (occurrence: None)
  Receive Date: 20240615
  Receipt Date: 20240615
  Transmission Date: 20240715
  Serious: Yes (Disabling)
  Sender: FDA-Public Use
  Company Number: None

PATIENT
  Age: 68 Year
  Sex: Male
  Weight: 63.9 kg

DRUGS (4)
  1. CELECOXIB [Suspect]
     Active Substance: CELECOXIB
     Indication: Tendonitis
     Dosage: 30 CAPSULES TWICE A DAY ORAL
     Route: 048
     Dates: start: 20240609, end: 20240614
  2. TAMSULOSIN [Concomitant]
  3. FINASTERIDE [Concomitant]
     Active Substance: FINASTERIDE
  4. TYLENOL [Concomitant]

REACTIONS (4)
  - Blood pressure increased [None]
  - Fatigue [None]
  - Dizziness [None]
  - Thinking abnormal [None]

NARRATIVE: CASE EVENT DATE: 20240614
